FAERS Safety Report 25164923 (Version 2)
Quarter: 2025Q2

REPORT INFORMATION
  Report Type: Spontaneous
  Country: US (occurrence: US)
  Receive Date: 20250406
  Receipt Date: 20250414
  Transmission Date: 20250717
  Serious: No
  Sender: SANOFI AVENTIS
  Company Number: US-SA-2025SA096002

PATIENT
  Age: 63 Year
  Sex: Male
  Weight: 107.03 kg

DRUGS (13)
  1. DUPIXENT [Suspect]
     Active Substance: DUPILUMAB
     Indication: Eosinophilic oesophagitis
     Dosage: 300 MG, QW
     Route: 058
     Dates: start: 20250321
  2. MODAFINIL [Concomitant]
     Active Substance: MODAFINIL
  3. VYVANSE [Concomitant]
     Active Substance: LISDEXAMFETAMINE DIMESYLATE
  4. CHLORTHALIDONE [Concomitant]
     Active Substance: CHLORTHALIDONE
  5. SILDENAFIL CITRATE [Concomitant]
     Active Substance: SILDENAFIL CITRATE
  6. PREGABALIN [Concomitant]
     Active Substance: PREGABALIN
  7. TRAZON [TRAZODONE] [Concomitant]
  8. MOXIFLOXACIN [Concomitant]
     Active Substance: MOXIFLOXACIN
  9. CYCLOBENZAPRINE [Concomitant]
     Active Substance: CYCLOBENZAPRINE
  10. ESOMEPRAZOLE MAGNESIUM [Concomitant]
     Active Substance: ESOMEPRAZOLE MAGNESIUM
  11. EOHILIA [Concomitant]
     Active Substance: BUDESONIDE
  12. AMLODIPINE BESYLATE [Concomitant]
     Active Substance: AMLODIPINE BESYLATE
  13. TRAZODONE [Concomitant]
     Active Substance: TRAZODONE HYDROCHLORIDE

REACTIONS (5)
  - Injection site vesicles [Unknown]
  - Skin indentation [Unknown]
  - Contusion [Unknown]
  - Accidental exposure to product [Unknown]
  - Exposure via skin contact [Unknown]

NARRATIVE: CASE EVENT DATE: 20250101
